FAERS Safety Report 8161260-7 (Version None)
Quarter: 2012Q1

REPORT INFORMATION
  Report Type: 
  Country: None (occurrence: None)
  Receive Date: 20120222
  Receipt Date: 20120222
  Transmission Date: 20120608
  Serious: Yes (Hospitalization)
  Sender: FDA-Public Use
  Company Number: None

PATIENT
  Age: 80 Year
  Sex: Female
  Weight: 78.4723 kg

DRUGS (2)
  1. ACTONEL [Suspect]
     Indication: DIARRHOEA
     Dosage: 1 TABLET EACH WEEK
  2. BONIVA [Suspect]
     Dosage: 1 TABLET (150 MG) EACH MONTH
     Dates: start: 20080915

REACTIONS (3)
  - FALL [None]
  - PAIN IN EXTREMITY [None]
  - FEMUR FRACTURE [None]
